FAERS Safety Report 8310340-1 (Version None)
Quarter: 2012Q2

REPORT INFORMATION
  Report Type: 
  Country: None (occurrence: None)
  Receive Date: 20120425
  Receipt Date: 20120420
  Transmission Date: 20120825
  Serious: Yes (Hospitalization)
  Sender: FDA-Public Use
  Company Number: PHHY2011JP113017

PATIENT
  Sex: Female

DRUGS (6)
  1. ZOMETA [Suspect]
     Indication: BREAST CANCER
     Route: 041
  2. DEXAMETHASONE SODIUM PHOSPHATE [Concomitant]
     Dosage: 8.25 MG, UNK
  3. GRANISETRON [Concomitant]
  4. PACLITAXEL [Suspect]
     Dosage: UNK UKN, UNK
     Dates: start: 20110901, end: 20111001
  5. FAMOTIDINE [Concomitant]
     Dosage: 20 MG, UNK
     Route: 041
  6. POLARAMINE [Concomitant]
     Dosage: 5 MG, UNK

REACTIONS (1)
  - INTERSTITIAL LUNG DISEASE [None]
